FAERS Safety Report 15551265 (Version 2)
Quarter: 2018Q4

REPORT INFORMATION
  Report Type: Spontaneous
  Country: CA (occurrence: CA)
  Receive Date: 20181025
  Receipt Date: 20181230
  Transmission Date: 20190205
  Serious: Yes (Life-Threatening, Hospitalization, Other)
  Sender: FDA-Public Use
  Company Number: CA-JNJFOC-20181025876

PATIENT
  Age: 16 Year
  Sex: Female
  Weight: 76 kg

DRUGS (5)
  1. PARACETAMOL [Suspect]
     Active Substance: ACETAMINOPHEN
     Indication: PRODUCT USED FOR UNKNOWN INDICATION
     Dosage: OVERDOSECUMULATIVE DOSE TO FIRST REACTION(NO.)209.3 GRAM (500 MG, 325 TABLETS)
     Route: 048
  2. PARACETAMOL [Suspect]
     Active Substance: ACETAMINOPHEN
     Route: 048
  3. ACETAMINOPHEN. [Suspect]
     Active Substance: ACETAMINOPHEN
     Indication: PRODUCT USED FOR UNKNOWN INDICATION
     Dosage: OVERDOSECUMULATIVE DOSE TO FIRST REACTION(NO.)209.3 GRAM (500 MG, 325 TABLETS)
     Route: 048
  4. PRAZOSIN. [Suspect]
     Active Substance: PRAZOSIN
     Indication: HYPERTENSION
     Dosage: OVERDOSE (55 2-MG)
     Route: 048
  5. NAPROXEN. [Suspect]
     Active Substance: NAPROXEN
     Indication: PRODUCT USED FOR UNKNOWN INDICATION
     Dosage: OVERDOSE (220 MG, 250 TABLETS, TOTAL 55 G)
     Route: 048

REACTIONS (7)
  - Vomiting [Unknown]
  - Hypotension [Recovering/Resolving]
  - Electrocardiogram QT prolonged [Unknown]
  - Overdose [Unknown]
  - Somnolence [Unknown]
  - Depressed level of consciousness [Unknown]
  - Sinus tachycardia [Unknown]
